FAERS Safety Report 8259353-9 (Version None)
Quarter: 2012Q2

REPORT INFORMATION
  Report Type: 
  Country: None (occurrence: None)
  Receive Date: 20120404
  Receipt Date: 20120326
  Transmission Date: 20120825
  Serious: Yes (Hospitalization)
  Sender: FDA-Public Use
  Company Number: FR-ASTRAZENECA-2012SE21167

PATIENT
  Sex: Male

DRUGS (2)
  1. QUETIAPINE FUMARATE [Suspect]
     Indication: SCHIZOPHRENIA
     Route: 048
     Dates: start: 20120201, end: 20120301
  2. UNSPECIFIED MEDICATION THAT DECREASE THE INTESTINAL MOTILITY [Concomitant]
     Indication: DIARRHOEA
     Route: 048
     Dates: start: 20120201

REACTIONS (1)
  - INTESTINAL ISCHAEMIA [None]
